FAERS Safety Report 4962957-X (Version None)
Quarter: 2006Q2

REPORT INFORMATION
  Report Type: 
  Country: None (occurrence: None)
  Receive Date: 20060405
  Receipt Date: 20060309
  Transmission Date: 20061013
  Serious: Yes (Hospitalization)
  Sender: FDA-Public Use
  Company Number: US-AMGEN-US172021

PATIENT
  Sex: Female
  Weight: 74 kg

DRUGS (4)
  1. NEULASTA [Suspect]
     Indication: CHEMOTHERAPY
     Route: 058
     Dates: start: 20060302, end: 20060302
  2. TAXOTERE [Suspect]
     Route: 065
     Dates: start: 20060301, end: 20060301
  3. ADRIAMYCIN PFS [Suspect]
     Route: 065
     Dates: start: 20060301, end: 20060301
  4. CYCLOPHOSPHAMIDE [Suspect]
     Route: 065
     Dates: start: 20060301, end: 20060301

REACTIONS (4)
  - ABDOMINAL PAIN [None]
  - INTESTINAL ISCHAEMIA [None]
  - INTESTINAL PERFORATION [None]
  - NEUTROPENIA [None]
